FAERS Safety Report 19750842 (Version 2)
Quarter: 2021Q3

REPORT INFORMATION
  Report Type: Report from Study
  Country: KR (occurrence: KR)
  Receive Date: 20210826
  Receipt Date: 20210907
  Transmission Date: 20211014
  Serious: Yes (Hospitalization)
  Sender: FDA-Public Use
  Company Number: KR-PFIZER INC-202101001025

PATIENT
  Age: 7 Year
  Sex: Male
  Weight: 25.4 kg

DRUGS (6)
  1. CEFOTAXIME [Concomitant]
     Active Substance: CEFOTAXIME SODIUM
     Indication: INFECTION
     Dosage: 1.25 G, 3X/DAY
     Route: 042
     Dates: start: 20210725, end: 20210730
  2. PLACEBO [Suspect]
     Active Substance: UNSPECIFIED INGREDIENT
     Indication: DUCHENNE MUSCULAR DYSTROPHY
     Dosage: UNK, SINGLE, INTRAVENOUS INFUSION
     Route: 042
     Dates: start: 20210723, end: 20210723
  3. BLINDED PF?06939926 [Suspect]
     Active Substance: FORDADISTROGENE MOVAPARVOVEC
     Indication: DUCHENNE MUSCULAR DYSTROPHY
     Dosage: UNK, SINGLE, INTRAVENOUS INFUSION
     Route: 042
     Dates: start: 20210723, end: 20210723
  4. FAMOTIDINE. [Concomitant]
     Active Substance: FAMOTIDINE
     Indication: GASTROINTESTINAL DISORDER
     Dosage: 20 MG, 1X/DAY
     Route: 042
     Dates: start: 20210725, end: 20210809
  5. PANTOPRAZOLE [Concomitant]
     Active Substance: PANTOPRAZOLE
     Indication: GASTROINTESTINAL DISORDER
     Dosage: 30 MG, 1X/DAY
     Route: 042
     Dates: start: 20210726, end: 20210808
  6. DISOLIN [Suspect]
     Active Substance: METHYLPREDNISOLONE SODIUM SUCCINATE
     Indication: DUCHENNE MUSCULAR DYSTROPHY
     Dosage: 40 MG, 1X/DAY
     Route: 042
     Dates: start: 20210725, end: 20210730

REACTIONS (3)
  - Abdominal discomfort [Recovered/Resolved]
  - Hypophagia [Recovered/Resolved]
  - Headache [Recovered/Resolved]

NARRATIVE: CASE EVENT DATE: 20210725
